FAERS Safety Report 6885458-0 (Version None)
Quarter: 2010Q3

REPORT INFORMATION
  Report Type: 
  Country: None (occurrence: None)
  Receive Date: 20100729
  Receipt Date: 20080815
  Transmission Date: 20110219
  Serious: No
  Sender: FDA-Public Use
  Company Number: US-PFIZER INC-2008024051

PATIENT
  Sex: Female
  Weight: 86.363 kg

DRUGS (7)
  1. CELEBREX [Suspect]
     Indication: ARTHRITIS
     Dates: start: 20080101
  2. CELEBREX [Suspect]
     Indication: FIBROMYALGIA
  3. CELEBREX [Suspect]
     Indication: OSTEOARTHRITIS
  4. ATENOLOL [Concomitant]
  5. HYDROCHLOROTHIAZIDE [Concomitant]
  6. FISH OIL [Concomitant]
  7. PRILOSEC [Concomitant]

REACTIONS (1)
  - DRUG INEFFECTIVE [None]
